FAERS Safety Report 20144555 (Version 1)
Quarter: 2021Q4

REPORT INFORMATION
  Report Type: Spontaneous
  Country: US (occurrence: None)
  Receive Date: 20211202
  Receipt Date: 20211202
  Transmission Date: 20220303
  Serious: No
  Sender: FDA-Public Use
  Company Number: None

PATIENT
  Sex: Male

DRUGS (2)
  1. BAMLANIVIMAB [Suspect]
     Active Substance: BAMLANIVIMAB
     Dates: start: 20211201
  2. ETESEVIMAB [Suspect]
     Active Substance: ETESEVIMAB
     Dates: start: 20211201

REACTIONS (3)
  - Product preparation issue [None]
  - Product preparation error [None]
  - Incorrect dose administered [None]

NARRATIVE: CASE EVENT DATE: 20211201
